FAERS Safety Report 23173867 (Version 3)
Quarter: 2024Q1

REPORT INFORMATION
  Report Type: Spontaneous
  Country: JP (occurrence: JP)
  Receive Date: 20231111
  Receipt Date: 20240217
  Transmission Date: 20240410
  Serious: Yes (Death, Life-Threatening)
  Sender: FDA-Public Use
  Company Number: JP-AMGEN-JPNSP2023199944

PATIENT
  Age: 78 Year
  Sex: Male
  Weight: 58 kg

DRUGS (4)
  1. BLINCYTO [Suspect]
     Active Substance: BLINATUMOMAB
     Indication: B precursor type acute leukaemia
     Dosage: 112 MICROGRAM, CONTINUING DRIP INFUSION
     Route: 042
     Dates: start: 20220711, end: 20220807
  2. PONATINIB [Concomitant]
     Active Substance: PONATINIB
     Dosage: UNK
  3. POSACONAZOLE [Concomitant]
     Active Substance: POSACONAZOLE
     Dosage: UNK
  4. ICLUSIG [Concomitant]
     Active Substance: PONATINIB
     Indication: B precursor type acute leukaemia
     Dosage: 45 MILLIGRAM, QD
     Dates: start: 20220711, end: 20220804

REACTIONS (4)
  - Lactic acidosis [Fatal]
  - Hepatic necrosis [Fatal]
  - Rash [Recovering/Resolving]
  - Pyrexia [Not Recovered/Not Resolved]

NARRATIVE: CASE EVENT DATE: 20220803
